FAERS Safety Report 22236333 (Version 1)
Quarter: 2023Q2

REPORT INFORMATION
  Report Type: Other
  Country: US (occurrence: None)
  Receive Date: 20230420
  Receipt Date: 20230420
  Transmission Date: 20230722
  Serious: No
  Sender: FDA-Public Use
  Company Number: US-ROCHE-3063738

PATIENT
  Age: 38 Year
  Sex: Female

DRUGS (5)
  1. BEVACIZUMAB [Suspect]
     Active Substance: BEVACIZUMAB
     Indication: Leiomyoma
     Route: 065
  2. BEVACIZUMAB [Suspect]
     Active Substance: BEVACIZUMAB
     Indication: Neovascularisation
  3. LEUPROLIDE [Concomitant]
     Active Substance: LEUPROLIDE
     Route: 030
  4. LETROZOLE [Concomitant]
     Active Substance: LETROZOLE
     Route: 048
  5. ULIPRISTAL ACETATE [Concomitant]
     Active Substance: ULIPRISTAL ACETATE
     Route: 048

REACTIONS (1)
  - Hypertension [Unknown]
